FAERS Safety Report 21893655 (Version 1)
Quarter: 2023Q1

REPORT INFORMATION
  Report Type: Spontaneous
  Country: US (occurrence: US)
  Receive Date: 20230121
  Receipt Date: 20230121
  Transmission Date: 20230418
  Serious: Yes (Other)
  Sender: FDA-Public Use
  Company Number: US-AUROBINDO-AUR-APL-2022-038512

PATIENT
  Age: 45 Year
  Sex: Male
  Weight: 80 kg

DRUGS (1)
  1. CLOZAPINE [Suspect]
     Active Substance: CLOZAPINE
     Indication: Product used for unknown indication
     Dosage: 300 MILLIGRAM, ONCE A DAY AT NIGHT
     Route: 048
     Dates: start: 202112

REACTIONS (5)
  - Agranulocytosis [Unknown]
  - Muscular weakness [Unknown]
  - Lumbar spinal stenosis [Unknown]
  - Back pain [Unknown]
  - Troponin increased [Unknown]

NARRATIVE: CASE EVENT DATE: 20220915
